FAERS Safety Report 20876168 (Version 1)
Quarter: 2022Q2

REPORT INFORMATION
  Report Type: Report from Study
  Country: GT (occurrence: GT)
  Receive Date: 20220526
  Receipt Date: 20220526
  Transmission Date: 20220721
  Serious: Yes (Other)
  Sender: FDA-Public Use
  Company Number: GT-NOVARTISPH-PHHY2019GT091599

PATIENT
  Age: 42 Year
  Sex: Female

DRUGS (2)
  1. EXFORGE [Suspect]
     Active Substance: AMLODIPINE BESYLATE\VALSARTAN
     Indication: Hypertension
     Dosage: 2X(AMLODIPINE 10 MG VALSARTAN 160 MG) UNK
     Route: 065
     Dates: start: 2019
  2. EXFORGE [Suspect]
     Active Substance: AMLODIPINE BESYLATE\VALSARTAN
     Dosage: (AMLODIPINE 10 MG VALSARTAN 320 MG) UNK
     Route: 065
     Dates: start: 201906

REACTIONS (4)
  - Diabetes mellitus [Unknown]
  - Blood pressure abnormal [Unknown]
  - Malaise [Unknown]
  - Incorrect dose administered [Unknown]
